FAERS Safety Report 5863160-1 (Version None)
Quarter: 2008Q3

REPORT INFORMATION
  Report Type: 
  Country: None (occurrence: None)
  Receive Date: 20080828
  Receipt Date: 20080821
  Transmission Date: 20090109
  Serious: Yes (Hospitalization)
  Sender: FDA-Public Use
  Company Number: A0744837A

PATIENT
  Age: 73 Year
  Sex: Female
  Weight: 65.9 kg

DRUGS (10)
  1. AVANDIA [Suspect]
     Dosage: 4MG PER DAY
     Route: 048
     Dates: start: 20000101, end: 20070601
  2. PLAVIX [Concomitant]
  3. NORVASC [Concomitant]
  4. ALTACE [Concomitant]
  5. AMBIEN [Concomitant]
  6. HUMIRA [Concomitant]
  7. ENBREL [Concomitant]
  8. RELAFEN [Concomitant]
  9. LOPRESSOR [Concomitant]
  10. PREDNISONE TAB [Concomitant]

REACTIONS (2)
  - CARDIAC FAILURE CONGESTIVE [None]
  - CEREBROVASCULAR ACCIDENT [None]
